FAERS Safety Report 7051884-2 (Version None)
Quarter: 2010Q4

REPORT INFORMATION
  Report Type: 
  Country: None (occurrence: None)
  Receive Date: 20101019
  Receipt Date: 20101014
  Transmission Date: 20110411
  Serious: Yes (Life-Threatening, Hospitalization)
  Sender: FDA-Public Use
  Company Number: JP-ROCHE-715637

PATIENT
  Sex: Female
  Weight: 39 kg

DRUGS (29)
  1. TOCILIZUMAB [Suspect]
     Indication: RHEUMATOID ARTHRITIS
     Route: 041
     Dates: start: 20080807, end: 20080807
  2. TOCILIZUMAB [Suspect]
     Route: 041
     Dates: start: 20080904, end: 20080904
  3. TOCILIZUMAB [Suspect]
     Route: 041
     Dates: start: 20081001, end: 20081001
  4. TOCILIZUMAB [Suspect]
     Route: 041
     Dates: start: 20081029, end: 20081029
  5. TOCILIZUMAB [Suspect]
     Route: 041
     Dates: start: 20081126, end: 20081126
  6. TOCILIZUMAB [Suspect]
     Route: 041
     Dates: start: 20081224, end: 20081224
  7. TOCILIZUMAB [Suspect]
     Route: 041
     Dates: start: 20090121, end: 20090121
  8. TOCILIZUMAB [Suspect]
     Route: 041
     Dates: start: 20090218, end: 20090218
  9. TOCILIZUMAB [Suspect]
     Route: 041
     Dates: start: 20090319, end: 20090319
  10. TOCILIZUMAB [Suspect]
     Route: 041
     Dates: start: 20090415, end: 20090415
  11. TOCILIZUMAB [Suspect]
     Route: 041
     Dates: start: 20090513, end: 20090513
  12. TOCILIZUMAB [Suspect]
     Route: 041
     Dates: start: 20090610, end: 20090610
  13. TOCILIZUMAB [Suspect]
     Route: 041
     Dates: start: 20090708, end: 20090708
  14. TOCILIZUMAB [Suspect]
     Route: 041
     Dates: start: 20090805
  15. PROGRAF [Concomitant]
     Route: 048
     Dates: end: 20080810
  16. METALCAPTASE [Concomitant]
     Route: 048
  17. ISCOTIN [Concomitant]
     Route: 048
     Dates: start: 20080630
  18. RIFADIN [Concomitant]
     Route: 048
     Dates: start: 20080630
  19. PREDONINE [Concomitant]
     Route: 048
  20. PREDONINE [Concomitant]
     Route: 048
  21. PYDOXAL [Concomitant]
     Route: 048
  22. TAKEPRON [Concomitant]
     Route: 048
  23. LORCAM [Concomitant]
     Route: 048
  24. PLETAL [Concomitant]
     Route: 048
  25. BONALON [Concomitant]
     Route: 048
  26. VOLTAREN [Concomitant]
     Dosage: FORM:SUPPOSITORY RECTALE
     Route: 054
  27. PURSENNID [Concomitant]
     Route: 048
  28. FLURBIPROFEN [Concomitant]
     Dosage: FORM: TAPE, DOSAGE UNCERTAIN, DRUG:ADOFEED
     Route: 062
  29. CYTOTEC [Concomitant]
     Route: 048

REACTIONS (7)
  - ARTHRALGIA [None]
  - GASTRITIS [None]
  - LUMBAR SPINAL STENOSIS [None]
  - LUNG NEOPLASM MALIGNANT [None]
  - MALIGNANT NEOPLASM PROGRESSION [None]
  - OSTEOPOROSIS [None]
  - PERIPHERAL VASCULAR DISORDER [None]
